FAERS Safety Report 8688819 (Version 3)
Quarter: 2012Q4

REPORT INFORMATION
  Report Type: 
  Country: US (occurrence: US)
  Receive Date: 20120727
  Receipt Date: 20121119
  Transmission Date: 20130627
  Serious: No
  Sender: FDA-Public Use
  Company Number: US-ASTRAZENECA-2011SE68527

PATIENT
  Age: 46 Year
  Sex: Female

DRUGS (2)
  1. SEROQUEL XR [Suspect]
     Route: 048
  2. SEROQUEL XR [Suspect]
     Route: 048

REACTIONS (11)
  - Insomnia [Unknown]
  - Memory impairment [Unknown]
  - Hallucination [Unknown]
  - Aphagia [Unknown]
  - Confusional state [Unknown]
  - Malaise [Unknown]
  - Anxiety [Unknown]
  - Migraine [Unknown]
  - Tremor [Unknown]
  - Drug withdrawal syndrome [Unknown]
  - Drug dose omission [Unknown]
